FAERS Safety Report 4510693-6 (Version None)
Quarter: 2004Q4

REPORT INFORMATION
  Report Type: 
  Country: None (occurrence: None)
  Receive Date: 20041122
  Receipt Date: 20041109
  Transmission Date: 20050328
  Serious: Yes (Death, Hospitalization)
  Sender: FDA-Public Use
  Company Number: 2004093730

PATIENT
  Age: 57 Year
  Sex: Female

DRUGS (1)
  1. EPIRUBICIN HYDROCHLORIDE (EPIRUBICIN HYDROCHLORIDE) [Suspect]
     Indication: HEPATIC NEOPLASM MALIGNANT
     Dosage: 50 MG (50 MG, 1 D), INTRA-ARTERIAL
     Route: 013
     Dates: start: 20000724

REACTIONS (1)
  - COMA HEPATIC [None]
